FAERS Safety Report 6490587-X (Version None)
Quarter: 2009Q4

REPORT INFORMATION
  Report Type: 
  Country: None (occurrence: None)
  Receive Date: 20091208
  Receipt Date: 20091123
  Transmission Date: 20100525
  Serious: Yes (Other)
  Sender: FDA-Public Use
  Company Number: TRP_06610_2009

PATIENT
  Sex: Female

DRUGS (2)
  1. RIBASPHERE [Suspect]
     Indication: HEPATITIS C
     Dosage: (ORAL)
     Route: 048
     Dates: start: 20091012, end: 20090101
  2. PEG-INTRON [Suspect]
     Indication: HEPATITIS C
     Dosage: (SUBCUTANEOUS)
     Route: 058
     Dates: start: 20091012, end: 20090101

REACTIONS (11)
  - ASTHENIA [None]
  - CONTUSION [None]
  - DEHYDRATION [None]
  - PAIN [None]
  - PLATELET COUNT DECREASED [None]
  - PRURITUS [None]
  - PYREXIA [None]
  - RASH MACULO-PAPULAR [None]
  - SKIN WARM [None]
  - WEIGHT DECREASED [None]
  - WHITE BLOOD CELL COUNT DECREASED [None]
